FAERS Safety Report 8117711-7 (Version None)
Quarter: 2012Q1

REPORT INFORMATION
  Report Type: 
  Country: None (occurrence: None)
  Receive Date: 20120202
  Receipt Date: 20120126
  Transmission Date: 20120608
  Serious: Yes (Hospitalization)
  Sender: FDA-Public Use
  Company Number: TPA2012A00475

PATIENT
  Age: 63 Year
  Sex: Female
  Weight: 83.4619 kg

DRUGS (8)
  1. ULORIC [Concomitant]
  2. DEXILANT [Suspect]
     Indication: DYSPEPSIA
     Dosage: 60 MG, 1 IN 1 D, PER ORAL
     Route: 048
     Dates: start: 20120117, end: 20120118
  3. VITAMIN D [Concomitant]
  4. GLIMEPIRIDE [Concomitant]
  5. VICTOZA [Concomitant]
  6. BENICAR [Concomitant]
  7. SODIUM BICARBONATE [Concomitant]
  8. PRAVASTATIN [Concomitant]

REACTIONS (4)
  - CHEST DISCOMFORT [None]
  - BLOOD PRESSURE DECREASED [None]
  - TACHYCARDIA [None]
  - DYSPNOEA [None]
